FAERS Safety Report 6192747-4 (Version None)
Quarter: 2009Q2

REPORT INFORMATION
  Report Type: 
  Country: None (occurrence: None)
  Receive Date: 20090518
  Receipt Date: 20090514
  Transmission Date: 20091009
  Serious: Yes (Hospitalization)
  Sender: FDA-Public Use
  Company Number: US-BRISTOL-MYERS SQUIBB COMPANY-14624290

PATIENT
  Age: 46 Year
  Sex: Female
  Weight: 77 kg

DRUGS (3)
  1. CISPLATIN [Suspect]
     Indication: OESOPHAGEAL ADENOCARCINOMA
     Dosage: 25MG/M2 EVERY 7DAYS START DATE OF THE COURSE: 23MAR09.
     Route: 042
     Dates: start: 20090427, end: 20090427
  2. TAXOL [Suspect]
     Indication: OESOPHAGEAL ADENOCARCINOMA
     Dosage: PACLITAXEL 50MG/M2 EVERY 7DAYS STARTED DATE OF THE COURSE:23MAR09.
     Route: 042
     Dates: start: 20090427, end: 20090427
  3. RADIATION THERAPY [Suspect]
     Indication: OESOPHAGEAL ADENOCARCINOMA
     Dosage: 1 DOSAGE FORM= 50.4GY NO OF FRACTION :28 NO OF ELASPED DAYS:37.
     Dates: start: 20090429, end: 20090429

REACTIONS (2)
  - DYSPHAGIA [None]
  - VOMITING [None]
